FAERS Safety Report 4356910-7 (Version None)
Quarter: 2004Q2

REPORT INFORMATION
  Report Type: 
  Country: None (occurrence: None)
  Receive Date: 20040507
  Receipt Date: 20040503
  Transmission Date: 20050107
  Serious: Yes (Death, Other)
  Sender: FDA-Public Use
  Company Number: 200314292BWH

PATIENT
  Age: 85 Year
  Sex: Female
  Weight: 76.2043 kg

DRUGS (13)
  1. AVELOX [Suspect]
     Indication: PNEUMONIA
     Dosage: 400 MG, QD, INTRAVENOUS
     Route: 042
     Dates: start: 20030307, end: 20030310
  2. ASPIRIN [Concomitant]
  3. LIPITOR [Concomitant]
  4. DIGOXIN [Concomitant]
  5. RANITIDINE [Concomitant]
  6. HEPARIN [Concomitant]
  7. BACTROBAN [Concomitant]
  8. ATROVENT [Concomitant]
  9. PROVENTIL [Concomitant]
  10. DEXAMETHASONE [Concomitant]
  11. KCL TAB [Concomitant]
  12. SPIRONOLACTONE [Concomitant]
  13. LASIX [Concomitant]

REACTIONS (4)
  - HEPATITIS [None]
  - HEPATOCELLULAR DAMAGE [None]
  - HYPOPERFUSION [None]
  - SEPSIS [None]
